FAERS Safety Report 12596263 (Version 1)
Quarter: 2016Q3

REPORT INFORMATION
  Report Type: Report from Study
  Country: US (occurrence: US)
  Receive Date: 20160726
  Receipt Date: 20160726
  Transmission Date: 20161109
  Serious: No
  Sender: FDA-Public Use
  Company Number: US-AMGEN-USASL2016086623

PATIENT
  Age: 60 Year
  Sex: Male

DRUGS (4)
  1. ZOMETA [Concomitant]
     Active Substance: ZOLEDRONIC ACID
     Dosage: UNK, Q3MO
  2. KYPROLIS [Suspect]
     Active Substance: CARFILZOMIB
     Indication: BENCE JONES PROTEIN URINE
     Dosage: UNK,  2 CONSECUTIVE DAYS A WEEK FOR 21 DAYS THEN 7 DAYS OFF
     Route: 065
     Dates: start: 2015
  3. ZOMETA [Concomitant]
     Active Substance: ZOLEDRONIC ACID
     Dosage: UNK UNK, QMO
  4. KYPROLIS [Suspect]
     Active Substance: CARFILZOMIB
     Indication: PLASMA CELL MYELOMA

REACTIONS (1)
  - Light chain analysis increased [Unknown]
